FAERS Safety Report 10149116 (Version 1)
Quarter: 2014Q2

REPORT INFORMATION
  Report Type: Spontaneous
  Country: ES (occurrence: None)
  Receive Date: 20140430
  Receipt Date: 20140430
  Transmission Date: 20141212
  Serious: Yes (Hospitalization)
  Sender: FDA-Public Use
  Company Number: ANI_2014_1365093

PATIENT
  Age: 35 Year
  Sex: Male

DRUGS (2)
  1. PHENYTOIN [Suspect]
     Indication: CONVULSION
  2. AMOXICILLIN [Suspect]
     Indication: HYPERSENSITIVITY
     Route: 048
     Dates: start: 20020513

REACTIONS (10)
  - Pyrexia [None]
  - Drug reaction with eosinophilia and systemic symptoms [None]
  - Pruritus generalised [None]
  - Headache [None]
  - Nausea [None]
  - Vomiting [None]
  - Eyelid oedema [None]
  - Urticaria [None]
  - Malaise [None]
  - Asthenia [None]
